FAERS Safety Report 5339961-5 (Version None)
Quarter: 2007Q2

REPORT INFORMATION
  Report Type: 
  Country: None (occurrence: None)
  Receive Date: 20070529
  Receipt Date: 20070518
  Transmission Date: 20071010
  Serious: Yes (Hospitalization)
  Sender: FDA-Public Use
  Company Number: 237747K06USA

PATIENT
  Age: 61 Year
  Sex: Female

DRUGS (2)
  1. REBIF [Suspect]
     Indication: MULTIPLE SCLEROSIS
     Dosage: SEE IMAGE; SUBCUTANEOUS
     Route: 058
     Dates: start: 20050101, end: 20061108
  2. REBIF [Suspect]
     Indication: MULTIPLE SCLEROSIS
     Dosage: SEE IMAGE; SUBCUTANEOUS
     Route: 058
     Dates: start: 20061127, end: 20070301

REACTIONS (4)
  - CYSTITIS [None]
  - GASTRIC INFECTION [None]
  - GASTROINTESTINAL INFECTION [None]
  - STAPHYLOCOCCAL INFECTION [None]
